FAERS Safety Report 19678376 (Version 1)
Quarter: 2021Q3

REPORT INFORMATION
  Report Type: Spontaneous
  Country: DE (occurrence: DE)
  Receive Date: 20210809
  Receipt Date: 20210809
  Transmission Date: 20211014
  Serious: No
  Sender: FDA-Public Use
  Company Number: DE-LUPIN PHARMACEUTICALS INC.-2021-14159

PATIENT
  Age: 33 Year
  Sex: Female

DRUGS (7)
  1. QUILONUM [Suspect]
     Active Substance: LITHIUM
     Dosage: 225 MILLIGRAM, HALF TABLET ONCE IN A DAY ( AFTER BIRTH OF INFANT)
     Route: 065
  2. QUILONUM [Suspect]
     Active Substance: LITHIUM
     Indication: BIPOLAR I DISORDER
     Dosage: 675 MILLIGRAM, ONE AND HALF TABLET AT A TIME BEFORE PREGNANCY AND UNTIL 15 WEEK OF GESTATION
     Route: 065
  3. LEVOTHYROXINE. [Suspect]
     Active Substance: LEVOTHYROXINE
     Indication: HYPOTHYROIDISM
     Dosage: 100 MICROGRAM
     Route: 065
  4. QUILONUM [Suspect]
     Active Substance: LITHIUM
     Dosage: 450 MILLIGRAM, QD, AT 39 WEEK OF GESTATION
     Route: 065
  5. QUILONUM [Suspect]
     Active Substance: LITHIUM
     Dosage: UNK, 450 MG/DAY ALTERNATING WITH 675 MG/DAY EVERY OTHER DAY (FROM 28 WEEK OF GESTATION UNTIL 38 WEEK
     Route: 065
  6. ESCITALOPRAM [Suspect]
     Active Substance: ESCITALOPRAM OXALATE
     Indication: DEPRESSED MOOD
     Dosage: 10 MILLIGRAM, QD
     Route: 065
  7. QUILONUM [Suspect]
     Active Substance: LITHIUM
     Dosage: 450 MILLIGRAM, QD, DURING 16 WEEKS AND 27TH WEEKS OF GESTATION
     Route: 065

REACTIONS (2)
  - Normal newborn [Unknown]
  - Exposure during pregnancy [Unknown]
